FAERS Safety Report 10222346 (Version 1)
Quarter: 2014Q1

REPORT INFORMATION
  Report Type: Spontaneous
  Country: US (occurrence: None)
  Receive Date: 20140306
  Receipt Date: 20140306
  Transmission Date: 20141002
  Serious: Yes (Hospitalization)
  Sender: FDA-Public Use
  Company Number: 163-21880-13050246

PATIENT
  Age: 28 Year
  Sex: Male

DRUGS (4)
  1. REVLIMID [Suspect]
     Indication: LYMPHANGIOMA
     Route: 048
     Dates: start: 201006, end: 2010
  2. ALBUMIN -ZLB (ALBUMIN) [Concomitant]
  3. CELEBREX (CELECOXIB) [Concomitant]
  4. ZEMPLAR (PARICALCITOL ) (CAPSULES) [Concomitant]

REACTIONS (1)
  - Full blood count decreased [None]
